FAERS Safety Report 22054696 (Version 1)
Quarter: 2023Q1

REPORT INFORMATION
  Report Type: Spontaneous
  Country: US (occurrence: US)
  Receive Date: 20230302
  Receipt Date: 20230302
  Transmission Date: 20230418
  Serious: No
  Sender: FDA-Public Use
  Company Number: US-PFIZER INC-PV202300038231

PATIENT
  Age: 50 Year
  Sex: Female

DRUGS (3)
  1. EUCRISA [Suspect]
     Active Substance: CRISABOROLE
     Indication: Rash
     Dosage: UNK
  2. EUCRISA [Suspect]
     Active Substance: CRISABOROLE
     Indication: Pruritus
  3. EUCRISA [Suspect]
     Active Substance: CRISABOROLE
     Indication: Dry skin

REACTIONS (1)
  - Therapeutic product effect incomplete [Unknown]
